FAERS Safety Report 5084568-0 (Version None)
Quarter: 2006Q3

REPORT INFORMATION
  Report Type: 
  Country: None (occurrence: None)
  Receive Date: 20060821
  Receipt Date: 20060803
  Transmission Date: 20061208
  Serious: Yes (Hospitalization)
  Sender: FDA-Public Use
  Company Number: PHHO2006BE12520

PATIENT
  Age: 75 Year
  Sex: Male
  Weight: 69.8 kg

DRUGS (4)
  1. GLEEVEC [Suspect]
     Indication: CHRONIC MYELOID LEUKAEMIA
     Dosage: 400 MG, QD
     Route: 048
     Dates: start: 20040101, end: 20060626
  2. ZANTAC [Concomitant]
  3. HYGROTON [Concomitant]
  4. NOBITEN [Concomitant]

REACTIONS (6)
  - ANOREXIA [None]
  - ASTHENIA [None]
  - FATIGUE [None]
  - MUSCULAR WEAKNESS [None]
  - OROPHARYNGEAL CANDIDIASIS [None]
  - PANCYTOPENIA [None]
